FAERS Safety Report 16363847 (Version 3)
Quarter: 2019Q3

REPORT INFORMATION
  Report Type: Spontaneous
  Country: US (occurrence: US)
  Receive Date: 20190528
  Receipt Date: 20190812
  Transmission Date: 20191004
  Serious: Yes (Hospitalization, Other)
  Sender: FDA-Public Use
  Company Number: US-PFIZER INC-2019222984

PATIENT
  Age: 64 Year
  Sex: Male
  Weight: 29.48 kg

DRUGS (4)
  1. BACLOFEN. [Concomitant]
     Active Substance: BACLOFEN
     Dosage: 20 MG, UNK
     Dates: start: 2000
  2. LYRICA [Suspect]
     Active Substance: PREGABALIN
     Indication: NEURALGIA
     Dosage: 100 MG, 3X/DAY
     Route: 048
     Dates: start: 2004
  3. MIDODRINE [Concomitant]
     Active Substance: MIDODRINE
     Dosage: 10 MG, UNK
     Dates: start: 2003
  4. LYRICA [Suspect]
     Active Substance: PREGABALIN
     Dosage: 50 MG, 3X/DAY

REACTIONS (5)
  - Sepsis [Recovered/Resolved]
  - Lung infection [Recovered/Resolved]
  - Hallucination [Unknown]
  - Weight decreased [Unknown]
  - Delirium [Unknown]

NARRATIVE: CASE EVENT DATE: 20190408
